FAERS Safety Report 8231137-7 (Version None)
Quarter: 2012Q1

REPORT INFORMATION
  Report Type: 
  Country: None (occurrence: None)
  Receive Date: 20120323
  Receipt Date: 20120315
  Transmission Date: 20120608
  Serious: Yes (Other)
  Sender: FDA-Public Use
  Company Number: US-PFIZER INC-2012068493

PATIENT
  Age: 85 Year
  Sex: Female
  Weight: 53 kg

DRUGS (2)
  1. LYRICA [Suspect]
     Indication: HYPOAESTHESIA
  2. LYRICA [Suspect]
     Indication: NEUROPATHY PERIPHERAL
     Dosage: 50 MG, 1X/DAY
     Route: 048
     Dates: start: 20120314, end: 20120315

REACTIONS (5)
  - PAIN [None]
  - BURNING SENSATION [None]
  - DYSKINESIA [None]
  - PAIN IN EXTREMITY [None]
  - NERVE COMPRESSION [None]
